FAERS Safety Report 23980644 (Version 2)
Quarter: 2024Q3

REPORT INFORMATION
  Report Type: Report from Study
  Country: US (occurrence: US)
  Receive Date: 20240617
  Receipt Date: 20240811
  Transmission Date: 20241017
  Serious: Yes (Other)
  Sender: TAKEDA
  Company Number: US-TAKEDA-2024TUS015916

PATIENT
  Sex: Male

DRUGS (3)
  1. VEDOLIZUMAB [Suspect]
     Active Substance: VEDOLIZUMAB
     Indication: Colitis ulcerative
     Dosage: 300 MILLIGRAM, Q6WEEKS
     Route: 042
     Dates: start: 202205
  2. VEDOLIZUMAB [Suspect]
     Active Substance: VEDOLIZUMAB
     Indication: Crohn^s disease
     Dosage: 300 MILLIGRAM, Q6WEEKS
     Route: 042
  3. VEDOLIZUMAB [Suspect]
     Active Substance: VEDOLIZUMAB
     Dosage: 300 MILLIGRAM, Q6WEEKS
     Route: 042

REACTIONS (12)
  - Inflammatory bowel disease [Unknown]
  - Balance disorder [Unknown]
  - Speech disorder [Unknown]
  - Diplopia [Unknown]
  - Drug effect less than expected [Unknown]
  - Pain [Unknown]
  - Asthenia [Unknown]
  - Arthritis [Unknown]
  - Off label use [Unknown]
  - Pain in extremity [Unknown]
  - Sinusitis [Unknown]
  - Fatigue [Unknown]
